FAERS Safety Report 7405261-2 (Version None)
Quarter: 2011Q2

REPORT INFORMATION
  Report Type: 
  Country: None (occurrence: None)
  Receive Date: 20110411
  Receipt Date: 20110314
  Transmission Date: 20111010
  Serious: Yes (Other)
  Sender: FDA-Public Use
  Company Number: US-BAYER-201040344NA

PATIENT
  Sex: Female
  Weight: 126.98 kg

DRUGS (10)
  1. VERAPAMIL [Concomitant]
  2. METFORMIN [Concomitant]
     Dosage: UNK
     Dates: start: 20030101
  3. VICODIN [Concomitant]
  4. YASMIN [Suspect]
     Indication: ACNE
     Dosage: UNK
     Route: 048
     Dates: start: 20050101, end: 20090101
  5. ZOMIG [Concomitant]
  6. OCELLA [Suspect]
     Indication: ACNE
     Dosage: UNK
     Dates: start: 20050101, end: 20090101
  7. OCELLA [Suspect]
     Indication: MENSTRUATION IRREGULAR
  8. MOTRIM [Concomitant]
  9. YASMIN [Suspect]
     Indication: MENSTRUATION IRREGULAR
  10. PROPRANOLOL [Concomitant]
     Dosage: UNK
     Dates: start: 20080101

REACTIONS (4)
  - INJURY [None]
  - GALLBLADDER DISORDER [None]
  - CHOLELITHIASIS [None]
  - CHOLECYSTITIS CHRONIC [None]
